FAERS Safety Report 5747119-0 (Version None)
Quarter: 2008Q2

REPORT INFORMATION
  Report Type: 
  Country: None (occurrence: None)
  Receive Date: 20080522
  Receipt Date: 20080513
  Transmission Date: 20081010
  Serious: Yes (Hospitalization)
  Sender: FDA-Public Use
  Company Number: KR-AMGEN-US270539

PATIENT
  Sex: Female

DRUGS (6)
  1. ENBREL [Suspect]
     Indication: RHEUMATOID ARTHRITIS
     Route: 058
     Dates: start: 20050131, end: 20050623
  2. GLIMEPIRIDE [Concomitant]
     Dosage: 1 MG, 2 MONTHS
  3. CELECOXIB [Concomitant]
  4. ETIZOLAM [Concomitant]
  5. BUCILLAMINE [Concomitant]
  6. TRIAMCINOLONE [Concomitant]

REACTIONS (5)
  - CONDITION AGGRAVATED [None]
  - EPSTEIN-BARR VIRUS INFECTION [None]
  - LYMPHOMA [None]
  - LYMPHOPROLIFERATIVE DISORDER [None]
  - RHEUMATOID ARTHRITIS [None]
